FAERS Safety Report 16469416 (Version 1)
Quarter: 2019Q3

REPORT INFORMATION
  Report Type: Spontaneous
  Country: US (occurrence: US)
  Receive Date: 20190621
  Receipt Date: 20190621
  Transmission Date: 20191004
  Serious: Yes (Disabling)
  Sender: FDA-Public Use
  Company Number: None

PATIENT
  Age: 66 Year
  Sex: Female
  Weight: 87.75 kg

DRUGS (1)
  1. NATURE-THROID [Suspect]
     Active Substance: THYROID, PORCINE
     Indication: HYPOTHYROIDISM
     Dosage: ?          QUANTITY:1 TABLET(S);?
     Route: 048
     Dates: start: 20190519, end: 20190619

REACTIONS (7)
  - Middle insomnia [None]
  - Dizziness [None]
  - Nausea [None]
  - Product availability issue [None]
  - Product substitution issue [None]
  - Alopecia [None]
  - Headache [None]

NARRATIVE: CASE EVENT DATE: 20190620
